FAERS Safety Report 5128709-5 (Version None)
Quarter: 2006Q4

REPORT INFORMATION
  Report Type: 
  Country: None (occurrence: None)
  Receive Date: 20061017
  Receipt Date: 20060905
  Transmission Date: 20070319
  Serious: Yes (Other)
  Sender: FDA-Public Use
  Company Number: FR-AVENTIS-200613074FR

PATIENT
  Sex: Female

DRUGS (3)
  1. FLAGYL [Suspect]
     Route: 048
     Dates: start: 20060825
  2. ZOLPIDEM TARTRATE [Concomitant]
     Route: 048
     Dates: start: 20060825, end: 20060825
  3. LAMALINE [Concomitant]
     Dates: start: 20060825

REACTIONS (3)
  - ANTEROGRADE AMNESIA [None]
  - CONFUSIONAL STATE [None]
  - HALLUCINATION, VISUAL [None]
